FAERS Safety Report 7632327-4 (Version None)
Quarter: 2011Q3

REPORT INFORMATION
  Report Type: 
  Country: None (occurrence: None)
  Receive Date: 20110725
  Receipt Date: 20100802
  Transmission Date: 20111222
  Serious: No
  Sender: FDA-Public Use
  Company Number: US-BRISTOL-MYERS SQUIBB COMPANY-15221443

PATIENT
  Age: 87 Year
  Sex: Male
  Weight: 86 kg

DRUGS (3)
  1. COUMADIN [Suspect]
  2. OMEPRAZOLE [Concomitant]
  3. LISINOPRIL [Concomitant]

REACTIONS (1)
  - VEIN DISORDER [None]
